FAERS Safety Report 25864500 (Version 1)
Quarter: 2025Q3

REPORT INFORMATION
  Report Type: Spontaneous
  Country: US (occurrence: None)
  Receive Date: 20250930
  Receipt Date: 20250930
  Transmission Date: 20251020
  Serious: Yes (Hospitalization)
  Sender: FDA-CTU
  Company Number: None

PATIENT
  Age: 44 Year
  Sex: Female
  Weight: 67.9 kg

DRUGS (2)
  1. SPRYCEL [Suspect]
     Active Substance: DASATINIB
     Dates: end: 20250705
  2. PREDNISONE [Suspect]
     Active Substance: PREDNISONE
     Dates: end: 20250706

REACTIONS (3)
  - Subdural haematoma [None]
  - Photophobia [None]
  - Headache [None]

NARRATIVE: CASE EVENT DATE: 20250706
